FAERS Safety Report 24176980 (Version 1)
Quarter: 2024Q3

REPORT INFORMATION
  Report Type: Spontaneous
  Country: US (occurrence: US)
  Receive Date: 20240806
  Receipt Date: 20240806
  Transmission Date: 20241017
  Serious: Yes (Hospitalization)
  Sender: DOMPE FARMACEUTICI
  Company Number: US-FARMAPROD-202407-2745

PATIENT
  Sex: Female

DRUGS (14)
  1. OXERVATE [Suspect]
     Active Substance: CENEGERMIN-BKBJ
     Indication: Neurotrophic keratopathy
     Route: 047
     Dates: start: 20240618
  2. ELIQUIS [Concomitant]
     Active Substance: APIXABAN
  3. WELLBUTRIN SR [Concomitant]
     Active Substance: BUPROPION HYDROCHLORIDE
  4. URE-NA [Concomitant]
  5. DOXYCYCLINE HYCLATE [Concomitant]
     Active Substance: DOXYCYCLINE HYCLATE
  6. METRONIDAZOLE [Concomitant]
     Active Substance: METRONIDAZOLE
  7. REFRESH CLASSIC [Concomitant]
     Active Substance: POLYVINYL ALCOHOL\POVIDONE
  8. XIIDRA [Concomitant]
     Active Substance: LIFITEGRAST
  9. FAMOTIDINE [Concomitant]
     Active Substance: FAMOTIDINE
  10. ASPIRIN [Concomitant]
     Active Substance: ASPIRIN
  11. CALCIUM\VITAMIN D [Concomitant]
     Active Substance: CALCIUM\VITAMIN D
  12. POLYMYXIN B SUL-TRIMETHOPRIM [Concomitant]
  13. PANTOPRAZOLE SODIUM [Concomitant]
     Active Substance: PANTOPRAZOLE SODIUM
  14. VITAMINS [Concomitant]
     Active Substance: VITAMINS

REACTIONS (1)
  - Hospitalisation [Unknown]
